FAERS Safety Report 13015265 (Version 2)
Quarter: 2020Q1

REPORT INFORMATION
  Report Type: Spontaneous
  Country: NL (occurrence: NL)
  Receive Date: 20161211
  Receipt Date: 20200127
  Transmission Date: 20200409
  Serious: Yes (Hospitalization)
  Sender: FDA-Public Use
  Company Number: NL-TEVA-717351ACC

PATIENT
  Age: 64 Year
  Sex: Female

DRUGS (1)
  1. METHOTREXATE (METHOTREXATE SODIUM) [Suspect]
     Active Substance: METHOTREXATE SODIUM
     Indication: RHEUMATOID ARTHRITIS
     Dosage: 15 MG ONCE WEEKLY
     Route: 048
     Dates: start: 20151124, end: 20160323

REACTIONS (1)
  - Depression [Recovering/Resolving]

NARRATIVE: CASE EVENT DATE: 20160323
